FAERS Safety Report 8251912-2 (Version None)
Quarter: 2012Q2

REPORT INFORMATION
  Report Type: 
  Country: None (occurrence: None)
  Receive Date: 20120402
  Receipt Date: 20120323
  Transmission Date: 20120825
  Serious: Yes (Hospitalization)
  Sender: FDA-Public Use
  Company Number: AT-FRI-1000029431

PATIENT
  Age: 30 Year
  Sex: Female

DRUGS (1)
  1. MILNACIPRAN [Suspect]
     Indication: OVERDOSE
     Route: 048
     Dates: start: 20110912, end: 20110912

REACTIONS (8)
  - SOMNOLENCE [None]
  - NAUSEA [None]
  - MUSCLE SPASMS [None]
  - HYPERTENSION [None]
  - MUSCLE CONTRACTIONS INVOLUNTARY [None]
  - SINUS TACHYCARDIA [None]
  - VOMITING [None]
  - OVERDOSE [None]
